FAERS Safety Report 5408420-3 (Version None)
Quarter: 2007Q3

REPORT INFORMATION
  Report Type: 
  Country: None (occurrence: None)
  Receive Date: 20070806
  Receipt Date: 20070731
  Transmission Date: 20080115
  Serious: Yes (Hospitalization)
  Sender: FDA-Public Use
  Company Number: 2007BI008745

PATIENT
  Age: 60 Year
  Sex: Female

DRUGS (6)
  1. AVONEX [Suspect]
     Indication: MULTIPLE SCLEROSIS
     Dosage: 30 UG;QW;IM
     Route: 030
     Dates: start: 20070409
  2. AVANDIA [Concomitant]
  3. DETROL [Concomitant]
  4. DIOVAN [Concomitant]
  5. WELCHOL [Concomitant]
  6. ASPIRIN [Concomitant]

REACTIONS (2)
  - PNEUMONIA [None]
  - STREPTOCOCCAL INFECTION [None]
